FAERS Safety Report 20832317 (Version 3)
Quarter: 2022Q2

REPORT INFORMATION
  Report Type: Spontaneous
  Country: CO (occurrence: CO)
  Receive Date: 20220516
  Receipt Date: 20220622
  Transmission Date: 20220721
  Serious: No
  Sender: FDA-Public Use
  Company Number: CO-AMGEN-COLSP2022082569

PATIENT
  Age: 54 Year
  Sex: Female

DRUGS (4)
  1. NEULASTA [Suspect]
     Active Substance: PEGFILGRASTIM
     Indication: Product used for unknown indication
     Dosage: 6 MILLIGRAM (DAY 1)
     Route: 058
  2. CARBOPLATIN [Concomitant]
     Active Substance: CARBOPLATIN
     Dosage: 285 MILLIGRAM (AUC 5 (285MG) IV DAY 1)
     Route: 042
  3. PACLITAXEL [Concomitant]
     Active Substance: PACLITAXEL
     Indication: Neuropathy peripheral
     Dosage: 130 MILLIGRAM/SQ. METER (ADJUSTED FOR NEUROPATHY (240) IV DAY 1)
     Route: 042
  4. FOSAPREPITANT [Concomitant]
     Active Substance: FOSAPREPITANT
     Dosage: 150 MILLIGRAM (DAY 1)
     Route: 042

REACTIONS (3)
  - Accidental exposure to product [Unknown]
  - Device issue [Unknown]
  - Wrong technique in product usage process [Unknown]

NARRATIVE: CASE EVENT DATE: 20220406
